FAERS Safety Report 12127531 (Version 3)
Quarter: 2016Q2

REPORT INFORMATION
  Report Type: Spontaneous
  Country: US (occurrence: US)
  Receive Date: 20160229
  Receipt Date: 20160429
  Transmission Date: 20160815
  Serious: Yes (Other)
  Sender: FDA-Public Use
  Company Number: US-BAYER-2016-032212

PATIENT
  Age: 34 Year
  Sex: Female
  Weight: 69.39 kg

DRUGS (8)
  1. MIRENA [Suspect]
     Active Substance: LEVONORGESTREL
     Indication: UTERINE HAEMORRHAGE
  2. OLOPATADINE [Concomitant]
     Active Substance: OLOPATADINE
     Dosage: 0.2% SOLN, AS NEEDED HIGHER DOSE
  3. FLAGYL [Concomitant]
     Active Substance: METRONIDAZOLE\METRONIDAZOLE HYDROCHLORIDE
     Dosage: 500 MG, QD
     Route: 048
  4. MIRENA [Suspect]
     Active Substance: LEVONORGESTREL
     Indication: CONTRACEPTION
     Dosage: 20 MCG/24HR, CONT
     Route: 015
     Dates: start: 201508, end: 20160316
  5. MIRENA [Suspect]
     Active Substance: LEVONORGESTREL
     Indication: MENORRHAGIA
  6. FLONASE [Concomitant]
     Active Substance: FLUTICASONE PROPIONATE
     Dosage: 50 MCG/ACT SUSP, QD
  7. VALTREX [Concomitant]
     Active Substance: VALACYCLOVIR HYDROCHLORIDE
     Dosage: 500 MG, QD
     Route: 048
  8. ALLEGRA [Concomitant]
     Active Substance: FEXOFENADINE HYDROCHLORIDE
     Indication: HYPERSENSITIVITY
     Dosage: 180 MG, QD
     Route: 048

REACTIONS (15)
  - Uterine leiomyoma [None]
  - Device expulsion [None]
  - Menorrhagia [Recovered/Resolved]
  - Genital haemorrhage [None]
  - Vulvitis [None]
  - Metrorrhagia [None]
  - Vaginal infection [None]
  - Hypomenorrhoea [None]
  - Coital bleeding [None]
  - Dyspareunia [Recovered/Resolved]
  - Urinary incontinence [Recovered/Resolved]
  - Ovarian cyst [None]
  - Vaginal discharge [None]
  - Dysmenorrhoea [None]
  - Loss of libido [Not Recovered/Not Resolved]

NARRATIVE: CASE EVENT DATE: 201508
